FAERS Safety Report 25375442 (Version 1)
Quarter: 2025Q2

REPORT INFORMATION
  Report Type: Report from Study
  Country: CN (occurrence: CN)
  Receive Date: 20250529
  Receipt Date: 20250529
  Transmission Date: 20250717
  Serious: Yes (Other)
  Sender: VERITY PHARMACEUTICALS INC.
  Company Number: CN-VER-202500011

PATIENT
  Sex: Female

DRUGS (1)
  1. TRIPTORELIN PAMOATE [Suspect]
     Active Substance: TRIPTORELIN PAMOATE
     Indication: In vitro fertilisation
     Dosage: POWDER AND SOLVENT FOR SUSPENSION FOR INJECTION; (3.75 MILLIGRAM(S), IN 28 DAY
     Route: 065

REACTIONS (2)
  - Gestational diabetes [Unknown]
  - Gestational hypertension [Unknown]
